FAERS Safety Report 13271716 (Version 1)
Quarter: 2017Q1

REPORT INFORMATION
  Report Type: Not Available
  Country: IE (occurrence: IE)
  Receive Date: 20170227
  Receipt Date: 20170227
  Transmission Date: 20170428
  Serious: Yes (Other)
  Sender: FDA-Public Use
  Company Number: IE--2017-IE-000001

PATIENT
  Age: 38 Year
  Sex: Male

DRUGS (1)
  1. METRONIDAZOLE BRAND UNSPECIFIED (VIVIMED) [Suspect]
     Active Substance: METRONIDAZOLE
     Indication: DENTAL CARE

REACTIONS (2)
  - Encephalopathy [Recovered/Resolved]
  - Cerebellar syndrome [Recovered/Resolved]
